FAERS Safety Report 20907828 (Version 2)
Quarter: 2022Q3

REPORT INFORMATION
  Report Type: Report from Study
  Country: US (occurrence: US)
  Receive Date: 20220602
  Receipt Date: 20220711
  Transmission Date: 20221027
  Serious: Yes (Other)
  Sender: FDA-Public Use
  Company Number: US-JAZZ-2022-US-018681

PATIENT
  Sex: Male

DRUGS (12)
  1. XYWAV [Suspect]
     Active Substance: CALCIUM OXYBATE\MAGNESIUM OXYBATE\POTASSIUM OXYBATE\SODIUM OXYBATE
     Indication: Narcolepsy
  2. XYWAV [Suspect]
     Active Substance: CALCIUM OXYBATE\MAGNESIUM OXYBATE\POTASSIUM OXYBATE\SODIUM OXYBATE
     Indication: Cataplexy
  3. XYWAV [Suspect]
     Active Substance: CALCIUM OXYBATE\MAGNESIUM OXYBATE\POTASSIUM OXYBATE\SODIUM OXYBATE
     Indication: Somnolence
  4. TESTOSTERONE [Suspect]
     Active Substance: TESTOSTERONE
     Dosage: 0000
     Dates: start: 20210701
  5. ANASTROZOLE [Concomitant]
     Active Substance: ANASTROZOLE
     Indication: Product used for unknown indication
     Dosage: 0000
     Dates: start: 20210701
  6. IVERMECTIN [Concomitant]
     Active Substance: IVERMECTIN
     Indication: Product used for unknown indication
     Dosage: 0000
     Dates: start: 20201201
  7. TADALAFIL [Concomitant]
     Active Substance: TADALAFIL
     Dosage: 0000
     Dates: start: 20210701
  8. VYVANSE [Concomitant]
     Active Substance: LISDEXAMFETAMINE DIMESYLATE
     Dosage: 0000
     Dates: start: 20211111
  9. DIETARY SUPPLEMENT [Concomitant]
     Active Substance: DIETARY SUPPLEMENT
     Dosage: 0000
     Dates: start: 20211201
  10. FISH OIL [Concomitant]
     Active Substance: FISH OIL
     Dosage: 0000
     Dates: start: 20211201
  11. LICORICE [Concomitant]
     Active Substance: LICORICE
     Dosage: 0000
     Dates: start: 20211201
  12. HERBALS [Concomitant]
     Active Substance: HERBALS
     Dosage: 0000
     Dates: start: 20211201

REACTIONS (2)
  - Prostate cancer [Unknown]
  - Fatigue [Unknown]
